FAERS Safety Report 4607719-8 (Version None)
Quarter: 2005Q1

REPORT INFORMATION
  Report Type: 
  Country: None (occurrence: None)
  Receive Date: 20050310
  Receipt Date: 20050307
  Transmission Date: 20050727
  Serious: Yes (Death, Hospitalization)
  Sender: FDA-Public Use
  Company Number: J081-232-3706

PATIENT
  Age: 88 Year
  Sex: Female
  Weight: 46 kg

DRUGS (5)
  1. DONEPEZIL HCL [Suspect]
     Indication: DEMENTIA ALZHEIMER'S TYPE
     Dosage: 5 MG, 1 IN 1 D, ORAL
     Route: 048
     Dates: start: 20041231, end: 20050214
  2. COROHERSER-R (DILTIAZEM HYDROCHLORIDE) [Concomitant]
  3. MUCOSOLATE L (AMBROXOL HYDROCHLORIDE) [Concomitant]
  4. AMOBAN (ZOPICLONE) [Concomitant]
  5. TIALAREAD (TIAPRIDE HYDROCHLORIDE) [Concomitant]

REACTIONS (11)
  - ACUTE RESPIRATORY FAILURE [None]
  - CARDIAC FAILURE [None]
  - CHILLS [None]
  - FALL [None]
  - FEMUR FRACTURE [None]
  - INFLAMMATION [None]
  - PALLOR [None]
  - PHLEBOTHROMBOSIS [None]
  - PNEUMONIA [None]
  - PULMONARY INFARCTION [None]
  - TRICUSPID VALVE INCOMPETENCE [None]
